FAERS Safety Report 4662933-0 (Version None)
Quarter: 2005Q2

REPORT INFORMATION
  Report Type: 
  Country: None (occurrence: None)
  Receive Date: 20050512
  Receipt Date: 20050503
  Transmission Date: 20051028
  Serious: Yes (Hospitalization, Other)
  Sender: FDA-Public Use
  Company Number: BRO-008623

PATIENT
  Age: 40 Year
  Sex: Female

DRUGS (2)
  1. IOPAMIDOL-370 [Suspect]
     Indication: ANGIOGRAM
     Dosage: 15 ML; IV
     Route: 042
     Dates: start: 20050425, end: 20050425
  2. IOPAMIDOL-370 [Suspect]
     Indication: VENOUS STENOSIS
     Dosage: 15 ML; IV
     Route: 042
     Dates: start: 20050425, end: 20050425

REACTIONS (3)
  - DEPRESSED LEVEL OF CONSCIOUSNESS [None]
  - NAUSEA [None]
  - TETANY [None]
